FAERS Safety Report 17584875 (Version 6)
Quarter: 2021Q2

REPORT INFORMATION
  Report Type: Spontaneous
  Country: US (occurrence: US)
  Receive Date: 20200326
  Receipt Date: 20210526
  Transmission Date: 20210716
  Serious: Yes (Other)
  Sender: FDA-Public Use
  Company Number: US-VERTEX PHARMACEUTICALS-2020-006304

PATIENT
  Age: 16 Year
  Sex: Male
  Weight: 54 kg

DRUGS (51)
  1. ACETAMINOPHEN. [Concomitant]
     Active Substance: ACETAMINOPHEN
     Dosage: 1 TABS, EVERY 6 HR
     Route: 048
  2. PANCRELIPASE. [Concomitant]
     Active Substance: PANCRELIPASE
     Dosage: 6 CAPSULES WITH MEALS AND 2?3 CAPSULES WITH SNACKS
  3. NIFEDIPINE. [Concomitant]
     Active Substance: NIFEDIPINE
     Indication: BLOOD PRESSURE INCREASED
  4. OXYCODONE [Concomitant]
     Active Substance: OXYCODONE
  5. LACTULOSE. [Concomitant]
     Active Substance: LACTULOSE
  6. INSULIN ASPART [Concomitant]
     Active Substance: INSULIN ASPART
  7. ISOPROPYL ALCOHOL. [Concomitant]
     Active Substance: ISOPROPYL ALCOHOL
     Dosage: PRIOR TO INSULIN INJECTION
     Route: 061
  8. TACROLIMUS. [Concomitant]
     Active Substance: TACROLIMUS
     Dosage: UNK, BID
     Route: 048
  9. LOVENOX [LEVOFLOXACIN] [Concomitant]
     Active Substance: LEVOFLOXACIN
  10. TYLENOL [Concomitant]
     Active Substance: ACETAMINOPHEN
  11. PROAIR HFA [Concomitant]
     Active Substance: ALBUTEROL SULFATE
     Dosage: 2 DOSAGE FORM
     Route: 055
  12. PROGRAF [Concomitant]
     Active Substance: TACROLIMUS
     Dosage: 1 MG
  13. PREDNISONE. [Concomitant]
     Active Substance: PREDNISONE
     Dosage: 2 TABS, DAILY
     Route: 048
  14. AZITHROMYCIN ANHYDROUS. [Concomitant]
     Active Substance: AZITHROMYCIN ANHYDROUS
     Dosage: 250 MG, 2 TABS, MON/WE/FR
     Route: 048
  15. INSULIN GLARGINE [Concomitant]
     Active Substance: INSULIN GLARGINE
  16. MAGNESIUM OXIDE. [Concomitant]
     Active Substance: MAGNESIUM OXIDE
     Dosage: 1 TAB, TID
     Route: 048
  17. POLYETHYLENE GLYCOL 3350. [Concomitant]
     Active Substance: POLYETHYLENE GLYCOL 3350
     Dosage: 17 GRAM, QD
     Route: 048
  18. SODIUM CHLORIDE. [Concomitant]
     Active Substance: SODIUM CHLORIDE
     Dosage: 4 MILLILITER, QD
  19. MYCOPHENOLATE MOFETIL. [Concomitant]
     Active Substance: MYCOPHENOLATE MOFETIL
     Dosage: UNK
  20. TOBRAMYCIN. [Concomitant]
     Active Substance: TOBRAMYCIN
  21. CHOLECALCIFEROL [Concomitant]
     Active Substance: CHOLECALCIFEROL
     Dosage: 1 TAB, TID
     Route: 048
  22. MIRALAX [Concomitant]
     Active Substance: POLYETHYLENE GLYCOL 3350
  23. FLUCONAZOLE. [Concomitant]
     Active Substance: FLUCONAZOLE
  24. DILAUDID [Concomitant]
     Active Substance: HYDROMORPHONE HYDROCHLORIDE
  25. PULMOZYME [Concomitant]
     Active Substance: DORNASE ALFA
     Dosage: 1 MG
  26. VALCYTE [Concomitant]
     Active Substance: VALGANCICLOVIR HYDROCHLORIDE
     Dosage: 450 MG
  27. SENNA [Concomitant]
     Active Substance: SENNA LEAF\SENNOSIDES\SENNOSIDES A AND B
     Dosage: UNK, BID
  28. PROPOFOL. [Concomitant]
     Active Substance: PROPOFOL
  29. AMLODIPINE [Concomitant]
     Active Substance: AMLODIPINE BESYLATE
     Dosage: 1 TAB, QD
     Route: 048
  30. HYPERSAL [Concomitant]
     Active Substance: SODIUM CHLORIDE
     Dosage: UNK
     Route: 055
  31. FENTANYL. [Concomitant]
     Active Substance: FENTANYL
  32. KETAMINE [Concomitant]
     Active Substance: KETAMINE
  33. GANCICLOVIR. [Concomitant]
     Active Substance: GANCICLOVIR
  34. ORAPRED [Concomitant]
     Active Substance: PREDNISOLONE SODIUM PHOSPHATE
  35. HYDRALAZINE [Concomitant]
     Active Substance: HYDRALAZINE HYDROCHLORIDE
  36. TRIKAFTA [Suspect]
     Active Substance: ELEXACAFTOR\IVACAFTOR\TEZACAFTOR
     Indication: CYSTIC FIBROSIS
     Dosage: 2 TABS (100MG ELEXACAFTOR/50 MG TEZACAFTOR/ 75 MG IVACAFTOR) AM; 1 TAB (1 TAB (150 MG IVACAFTOR) PM
     Route: 048
     Dates: start: 20191213
  37. ASPIRIN [ACETYLSALICYLIC ACID] [Concomitant]
     Active Substance: ASPIRIN
  38. ALBUTEROL [SALBUTAMOL] [Concomitant]
     Active Substance: ALBUTEROL
     Dosage: GIVE 2 PUFFS TWICE DAILY AND EVERY 4?6 HRS AS NEEDED
  39. VITAMIN A [RETINOL] [Concomitant]
     Active Substance: RETINOL
     Dosage: 1 CAPSULE, QD
     Route: 048
  40. GLYCOPYRROLATE [GLYCOPYRRONIUM] [Concomitant]
     Active Substance: GLYCOPYRRONIUM
  41. BACTRIM [Concomitant]
     Active Substance: SULFAMETHOXAZOLE\TRIMETHOPRIM
  42. MAGNESIUM [Concomitant]
     Active Substance: MAGNESIUM
     Dosage: 250 MG
     Route: 048
  43. URSO [Concomitant]
     Active Substance: URSODIOL
     Dosage: 250 MG
     Route: 048
  44. ZOSYN [Concomitant]
     Active Substance: PIPERACILLIN SODIUM\TAZOBACTAM SODIUM
  45. VALIUM [Concomitant]
     Active Substance: DIAZEPAM
  46. OMEPRAZOLE. [Concomitant]
     Active Substance: OMEPRAZOLE
     Dosage: UNK, QD
     Route: 048
  47. CREON [Concomitant]
     Active Substance: PANCRELIPASE AMYLASE\PANCRELIPASE LIPASE\PANCRELIPASE PROTEASE
     Dosage: 24?76?120K, 5 DOSAGE FORM
     Route: 048
  48. VITAMIN A [RETINOL ACETATE] [Concomitant]
     Dosage: UNK
  49. FAMOTIDINE. [Concomitant]
     Active Substance: FAMOTIDINE
     Dosage: 1 TAB, BID
     Route: 048
  50. ONDANSETRON [Concomitant]
     Active Substance: ONDANSETRON
     Dosage: 1 TABS, ORAL, EVERY 6 HR
     Route: 048
  51. VALGANCICLOVIR. [Concomitant]
     Active Substance: VALGANCICLOVIR

REACTIONS (5)
  - Volvulus [Unknown]
  - Infection in an immunocompromised host [Recovered/Resolved]
  - Weight decreased [Recovering/Resolving]
  - Liver transplant rejection [Unknown]
  - Postoperative adhesion [Unknown]

NARRATIVE: CASE EVENT DATE: 2020
